FAERS Safety Report 19360983 (Version 1)
Quarter: 2021Q2

REPORT INFORMATION
  Report Type: Spontaneous
  Country: US (occurrence: US)
  Receive Date: 20210602
  Receipt Date: 20210602
  Transmission Date: 20210717
  Serious: No
  Sender: FDA-Public Use
  Company Number: US-MDD US OPERATIONS-USW202001-000058

PATIENT
  Age: 84 Year
  Sex: Female
  Weight: 66.67 kg

DRUGS (16)
  1. SINEMET [Concomitant]
     Active Substance: CARBIDOPA\LEVODOPA
     Dosage: 50MG?125MG
  2. MAGNESIUM [Concomitant]
     Active Substance: MAGNESIUM
     Dosage: NOT PROVIDED
  3. SIMVASTATIN. [Concomitant]
     Active Substance: SIMVASTATIN
     Dosage: NOT PROVIDED
  4. LISINOPRIL. [Concomitant]
     Active Substance: LISINOPRIL
     Dosage: NOT PROVIDED
  5. ZYRTEC [Concomitant]
     Active Substance: CETIRIZINE HYDROCHLORIDE
     Dosage: NOT PROVIDED
  6. APOKYN [Suspect]
     Active Substance: APOMORPHINE HYDROCHLORIDE
     Route: 058
     Dates: start: 2019
  7. ALEVE [Concomitant]
     Active Substance: NAPROXEN SODIUM
     Dosage: NOT PROVIDED
  8. REQUIP [Concomitant]
     Active Substance: ROPINIROLE HYDROCHLORIDE
     Dosage: NOT PROVIDED
  9. LATANOPROST. [Concomitant]
     Active Substance: LATANOPROST
     Dosage: NOT PROVIDED
  10. APOKYN [Suspect]
     Active Substance: APOMORPHINE HYDROCHLORIDE
     Indication: PARKINSON^S DISEASE
     Dates: start: 2019
  11. SINEMET [Concomitant]
     Active Substance: CARBIDOPA\LEVODOPA
     Dosage: 25MG?100MG
  12. TEMAZEPAM. [Concomitant]
     Active Substance: TEMAZEPAM
     Dosage: NOT PROVIDED
  13. CARVEDILOL. [Concomitant]
     Active Substance: CARVEDILOL
     Dosage: NOT PROVIDED
  14. SINEMET [Concomitant]
     Active Substance: CARBIDOPA\LEVODOPA
     Dosage: 10MG?100MG
  15. APOKYN [Suspect]
     Active Substance: APOMORPHINE HYDROCHLORIDE
     Dosage: NOT PROVIDED
     Dates: start: 2019
  16. CELEBREX [Concomitant]
     Active Substance: CELECOXIB
     Indication: PARKINSON^S DISEASE
     Dosage: NOT PROVIDED

REACTIONS (6)
  - Incorrect dose administered by device [Unknown]
  - Device use issue [Unknown]
  - Product dose omission issue [Unknown]
  - Parkinson^s disease [Unknown]
  - Dysphagia [Unknown]
  - Intentional overdose [Unknown]

NARRATIVE: CASE EVENT DATE: 20200113
